FAERS Safety Report 24075818 (Version 2)
Quarter: 2024Q3

REPORT INFORMATION
  Report Type: Spontaneous
  Country: DE (occurrence: DE)
  Receive Date: 20240710
  Receipt Date: 20240910
  Transmission Date: 20241016
  Serious: Yes (Other)
  Sender: CALLIDITAS THERAPEUTICS
  Company Number: DE-STADA-01262394

PATIENT
  Age: 66 Year
  Sex: Male

DRUGS (1)
  1. BUDESONIDE [Suspect]
     Active Substance: BUDESONIDE
     Indication: IgA nephropathy
     Route: 048
     Dates: start: 20240529

REACTIONS (5)
  - Glomerular filtration rate decreased [Recovered/Resolved]
  - Glycosylated haemoglobin increased [Not Recovered/Not Resolved]
  - Blood pressure fluctuation [Unknown]
  - Oedema peripheral [Unknown]
  - Urine protein/creatinine ratio increased [Not Recovered/Not Resolved]
